FAERS Safety Report 16323170 (Version 2)
Quarter: 2019Q3

REPORT INFORMATION
  Report Type: Spontaneous
  Country: MW (occurrence: MW)
  Receive Date: 20190517
  Receipt Date: 20190708
  Transmission Date: 20191004
  Serious: Yes (Hospitalization)
  Sender: FDA-Public Use
  Company Number: MW-009507513-1905MWI005646

PATIENT
  Age: 20 Year
  Sex: Female
  Weight: 50 kg

DRUGS (1)
  1. IMPLANON [Suspect]
     Active Substance: ETONOGESTREL
     Indication: CONTRACEPTION
     Dosage: 1 IMPLANT FOR 3 YEARS, PLACED IN THE UPPER ARM
     Route: 059
     Dates: start: 20160407, end: 20190425

REACTIONS (4)
  - Peripheral swelling [Recovering/Resolving]
  - Incorrect product administration duration [Unknown]
  - Joint range of motion decreased [Recovering/Resolving]
  - Implant site cellulitis [Recovering/Resolving]

NARRATIVE: CASE EVENT DATE: 20190408
